FAERS Safety Report 6818130-3 (Version None)
Quarter: 2010Q3

REPORT INFORMATION
  Report Type: 
  Country: None (occurrence: None)
  Receive Date: 20100706
  Receipt Date: 20100623
  Transmission Date: 20110219
  Serious: Yes (Death, Hospitalization, Other)
  Sender: FDA-Public Use
  Company Number: KR-TYCO HEALTHCARE/MALLINCKRODT-T201001496

PATIENT

DRUGS (16)
  1. EXALGO [Suspect]
     Indication: PAIN MANAGEMENT
     Dosage: 32 MG, QD
     Route: 048
     Dates: start: 20091222, end: 20100115
  2. OXYCODONE HCL [Suspect]
     Indication: PAIN MANAGEMENT
     Dosage: 5 MG, QD
     Route: 048
     Dates: start: 20091223, end: 20091223
  3. FENTANYL                           /00174602/ [Suspect]
     Indication: PAIN MANAGEMENT
     Dosage: 62.5 UG/HR, 1 Q72 HOURS
     Route: 062
     Dates: start: 20091217, end: 20091220
  4. FENTANYL                           /00174602/ [Suspect]
     Dosage: 87.5 UG/HR, 1 Q72 HOURS
     Route: 062
     Dates: start: 20091221, end: 20091221
  5. TRAMADOL HYDROCHLORIDE [Suspect]
     Indication: PAIN MANAGEMENT
     Dosage: 25 MG, 1 IN 1 DAY
     Route: 042
     Dates: start: 20091222, end: 20091222
  6. TRAMADOL HYDROCHLORIDE [Suspect]
     Dosage: 50 MG, 2 IN 1 DAY
     Route: 042
     Dates: start: 20091222, end: 20091222
  7. TRAMADOL HYDROCHLORIDE [Suspect]
     Dosage: 50 MG, 1 IN 1 DAY
     Route: 042
     Dates: start: 20100116, end: 20100117
  8. ITOPRIDE HYDROCHLORIDE [Concomitant]
     Indication: DYSPEPSIA
     Dosage: 50 MG, 3 IN 1 DAY
     Route: 048
     Dates: start: 20091220, end: 20100115
  9. TAZOBACTAM SODIUM [Concomitant]
     Indication: ANTIBIOTIC THERAPY
     Dosage: 2.25 G, 4 IN 1 DAY
     Route: 042
     Dates: start: 20091221, end: 20091230
  10. MAGNESIUM OXIDE [Concomitant]
     Indication: CONSTIPATION
     Dosage: 500 MG, 3 IN 1 DAY
     Dates: start: 20091220, end: 20100115
  11. CIPROFLOXACIN [Concomitant]
     Indication: ANTIBIOTIC THERAPY
     Dosage: 200 MG, 2 IN 1 DAY
     Route: 042
     Dates: start: 20091221, end: 20091230
  12. DUPHALAC [Concomitant]
     Indication: CONSTIPATION
     Dosage: 20 ML, 3 IN 1 DAY
     Route: 048
     Dates: start: 20091221, end: 20100112
  13. MORPHINE [Concomitant]
     Indication: PAIN MANAGEMENT
     Dosage: 5 MG, 1 IN 1 DAY
     Route: 042
     Dates: start: 20100115, end: 20100115
  14. MORPHINE [Concomitant]
     Dosage: 5 MG, 1 IN 1 DAY
     Route: 042
     Dates: start: 20100118, end: 20100118
  15. MORPHINE [Concomitant]
     Dosage: 48 MG, 1 IN 24 HOURS
     Route: 042
     Dates: start: 20100118
  16. PETHIDINE HYDROCHLORIDE [Concomitant]
     Indication: PAIN MANAGEMENT
     Dosage: 25 MG, 1 IN 1 DAY
     Route: 042
     Dates: start: 20100116, end: 20100118

REACTIONS (4)
  - ASTHENIA [None]
  - CONSTIPATION [None]
  - ILEUS [None]
  - PLEURAL EFFUSION [None]
